FAERS Safety Report 16997858 (Version 1)
Quarter: 2019Q4

REPORT INFORMATION
  Report Type: Spontaneous
  Country: US (occurrence: US)
  Receive Date: 20191105
  Receipt Date: 20191105
  Transmission Date: 20200122
  Serious: No
  Sender: FDA-Public Use
  Company Number: None

PATIENT
  Age: 49 Year
  Sex: Female

DRUGS (1)
  1. NP THYROID [Suspect]
     Active Substance: LEVOTHYROXINE\LIOTHYRONINE
     Indication: HYPOTHYROIDISM
     Route: 048
     Dates: start: 20191007, end: 20191105

REACTIONS (4)
  - Alopecia [None]
  - Fatigue [None]
  - Disease recurrence [None]
  - Product odour abnormal [None]

NARRATIVE: CASE EVENT DATE: 20191105
